FAERS Safety Report 4707061-0 (Version None)
Quarter: 2005Q3

REPORT INFORMATION
  Report Type: 
  Country: None (occurrence: None)
  Receive Date: 20050706
  Receipt Date: 20050603
  Transmission Date: 20060218
  Serious: Yes (Death, Hospitalization)
  Sender: FDA-Public Use
  Company Number: PHRM2005FR01730

PATIENT
  Age: 60 Year
  Sex: Male

DRUGS (1)
  1. LAMISIL [Suspect]
     Indication: NAIL TINEA
     Dosage: 250 MG, QD
     Route: 048
     Dates: start: 20040701, end: 20050201

REACTIONS (23)
  - ALANINE AMINOTRANSFERASE INCREASED [None]
  - ASPARTATE AMINOTRANSFERASE INCREASED [None]
  - BLOOD CREATININE INCREASED [None]
  - BLOOD GLUCOSE INCREASED [None]
  - BLOOD UREA INCREASED [None]
  - BLOOD URIC ACID INCREASED [None]
  - CARDIOMEGALY [None]
  - DERMATITIS BULLOUS [None]
  - DIZZINESS [None]
  - DYSPHAGIA [None]
  - HAEMOPTYSIS [None]
  - HYPERHIDROSIS [None]
  - INTERSTITIAL LUNG DISEASE [None]
  - NEUTROPHIL COUNT INCREASED [None]
  - OXYGEN SATURATION DECREASED [None]
  - PALLOR [None]
  - PRODUCTIVE COUGH [None]
  - RALES [None]
  - SENSATION OF FOREIGN BODY [None]
  - SUDDEN DEATH [None]
  - SYNCOPE VASOVAGAL [None]
  - WHEEZING [None]
  - WHITE BLOOD CELL COUNT INCREASED [None]
